FAERS Safety Report 5205373-8 (Version None)
Quarter: 2007Q1

REPORT INFORMATION
  Report Type: 
  Country: None (occurrence: None)
  Receive Date: 20070110
  Receipt Date: 20070104
  Transmission Date: 20070707
  Serious: Yes (Other)
  Sender: FDA-Public Use
  Company Number: US-MERCK-0304USA02024

PATIENT
  Age: 76 Year
  Sex: Female

DRUGS (4)
  1. TIMOPTIC [Suspect]
     Indication: GLAUCOMA
     Route: 047
     Dates: start: 19840101
  2. SYNTHROID [Concomitant]
     Route: 065
  3. MYSOLINE [Concomitant]
     Route: 065
  4. LOTREL [Suspect]
     Route: 065

REACTIONS (6)
  - BRAIN NEOPLASM [None]
  - DRUG ADMINISTRATION ERROR [None]
  - DYSGEUSIA [None]
  - FEELING ABNORMAL [None]
  - GALLBLADDER DISORDER [None]
  - TRANSIENT ISCHAEMIC ATTACK [None]
